FAERS Safety Report 5921159-0 (Version None)
Quarter: 2008Q4

REPORT INFORMATION
  Report Type: 
  Country: None (occurrence: None)
  Receive Date: 20081016
  Receipt Date: 20081006
  Transmission Date: 20090506
  Serious: Yes (Hospitalization)
  Sender: FDA-Public Use
  Company Number: ZA-ELI_LILLY_AND_COMPANY-ZA200809003506

PATIENT
  Age: 58 Year
  Sex: Male

DRUGS (2)
  1. CYMBALTA [Suspect]
     Indication: DEPRESSION
     Dosage: 60 MG, UNKNOWN
     Route: 048
     Dates: end: 20080703
  2. MOLIPAXIN [Concomitant]
     Indication: DEPRESSION
     Dosage: 50 MG, EACH EVENING
     Route: 065
     Dates: start: 20080201, end: 20080701

REACTIONS (1)
  - CONGESTIVE CARDIOMYOPATHY [None]
